FAERS Safety Report 5008086-0 (Version None)
Quarter: 2006Q1

REPORT INFORMATION
  Report Type: 
  Country: None (occurrence: None)
  Receive Date: 20060329
  Receipt Date: 20060110
  Transmission Date: 20060701
  Serious: Yes (Hospitalization)
  Sender: FDA-Public Use
  Company Number: A03200600211

PATIENT
  Age: 57 Year
  Sex: Female

DRUGS (1)
  1. AMBIEN [Suspect]
     Indication: INSOMNIA
     Dosage: 12.5 MG HS - ORAL
     Route: 048
     Dates: start: 20051001

REACTIONS (5)
  - BURNS FIRST DEGREE [None]
  - BURNS SECOND DEGREE [None]
  - HEAD INJURY [None]
  - PERIORBITAL HAEMATOMA [None]
  - SYNCOPE [None]
